FAERS Safety Report 24594544 (Version 2)
Quarter: 2025Q3

REPORT INFORMATION
  Report Type: Spontaneous
  Country: EU (occurrence: EU)
  Receive Date: 20241108
  Receipt Date: 20250915
  Transmission Date: 20251021
  Serious: Yes (Life-Threatening, Hospitalization, Other)
  Sender: NOVARTIS
  Company Number: EU-002147023-NVSC2021HR245109

PATIENT
  Age: 0 Year
  Sex: Female

DRUGS (6)
  1. ZOLGENSMA [Suspect]
     Active Substance: ONASEMNOGENE ABEPARVOVEC-XIOI
     Indication: Spinal muscular atrophy
     Route: 042
     Dates: start: 20211006, end: 20211006
  2. PREDNISONE [Concomitant]
     Active Substance: PREDNISONE
     Indication: Prophylaxis
     Route: 048
     Dates: start: 20211005, end: 20211008
  3. PREDNISONE [Concomitant]
     Active Substance: PREDNISONE
     Route: 048
     Dates: start: 20211008, end: 20211018
  4. PREDNISONE [Concomitant]
     Active Substance: PREDNISONE
     Route: 065
     Dates: start: 20211018, end: 20211218
  5. PREDNISONE [Concomitant]
     Active Substance: PREDNISONE
     Route: 065
  6. PANTOPRAZOLE SODIUM [Concomitant]
     Active Substance: PANTOPRAZOLE SODIUM
     Indication: Product used for unknown indication
     Route: 048
     Dates: start: 20211005, end: 20211218

REACTIONS (19)
  - Respiratory tract infection [Recovered/Resolved]
  - Transaminases increased [Recovering/Resolving]
  - Vomiting [Recovering/Resolving]
  - Thrombocytopenia [Recovering/Resolving]
  - Pneumonia [Unknown]
  - Aspiration [Unknown]
  - Hypotonia [Unknown]
  - Movement disorder [Unknown]
  - Head discomfort [Unknown]
  - Areflexia [Unknown]
  - Muscle contractions involuntary [Unknown]
  - Hyperventilation [Unknown]
  - Nausea [Unknown]
  - Spinal muscular atrophy [Unknown]
  - Condition aggravated [Unknown]
  - Diarrhoea [Unknown]
  - Dysphagia [Unknown]
  - Chest discomfort [Unknown]
  - Scoliosis [Unknown]

NARRATIVE: CASE EVENT DATE: 20211008
